FAERS Safety Report 9521979 (Version 1)
Quarter: 2013Q1

REPORT INFORMATION
  Report Type: Spontaneous
  Country: US (occurrence: None)
  Receive Date: 20130305
  Receipt Date: 20130305
  Transmission Date: 20140127
  Serious: Yes (Hospitalization)
  Sender: FDA-Public Use
  Company Number: 163-21880-12013279

PATIENT
  Age: 54 Year
  Sex: Female
  Weight: 65.77 kg

DRUGS (9)
  1. REVLIMID (LENALIDOMIDE) (25 MILLIGRAM, CAPSULES) [Suspect]
     Indication: PLASMA CELL MYELOMA
     Dosage: FOR 28 DAYS
     Route: 048
     Dates: start: 201109, end: 201112
  2. LOVENOX [Concomitant]
  3. GLYBURIDE [Concomitant]
  4. OXYCODONE [Concomitant]
  5. COMPAZINE [Concomitant]
  6. OXYCONTIN [Concomitant]
  7. ACYCLOVIR [Concomitant]
  8. SIMVASTATIN [Concomitant]
  9. EXFORGE [Concomitant]

REACTIONS (3)
  - Hip fracture [None]
  - Plasmacytoma [None]
  - Abdominal pain [None]
